FAERS Safety Report 12434707 (Version 3)
Quarter: 2016Q3

REPORT INFORMATION
  Report Type: Spontaneous
  Country: JP (occurrence: JP)
  Receive Date: 20160603
  Receipt Date: 20160715
  Transmission Date: 20161109
  Serious: Yes (Death, Life-Threatening, Other)
  Sender: FDA-Public Use
  Company Number: JP-009507513-1606JPN001490

PATIENT
  Age: 75 Year
  Sex: Male

DRUGS (7)
  1. BELSOMRA [Suspect]
     Active Substance: SUVOREXANT
     Indication: INSOMNIA
     Dosage: 15 MG, QD
     Route: 048
     Dates: start: 20160428, end: 20160428
  2. ADALAT CC [Concomitant]
     Active Substance: NIFEDIPINE
     Dosage: 10 MG, QD (DIVIDED DOSE FREQUENCY UNKNOWN)
     Route: 048
     Dates: start: 20091119
  3. LOXOPROFEN [Concomitant]
     Active Substance: LOXOPROFEN
     Dosage: AS NEEDED, DOSAGE UNKNOWN
     Route: 048
  4. RESPLEN [Concomitant]
     Active Substance: EPRAZINONE
     Dosage: DAILY DOSAGE UNKNOWN
     Route: 048
     Dates: start: 20160413, end: 20160417
  5. TRANEXAMIC ACID. [Concomitant]
     Active Substance: TRANEXAMIC ACID
     Dosage: DAILY DOSAGE UNKNOWN
     Dates: start: 20160413, end: 20160417
  6. NORVASC [Concomitant]
     Active Substance: AMLODIPINE BESYLATE
     Indication: HYPERTENSION
     Dosage: 5 MG, QD
     Route: 048
     Dates: start: 20100321
  7. AZITHROMYCIN ANHYDROUS. [Concomitant]
     Active Substance: AZITHROMYCIN ANHYDROUS
     Dosage: DAILY DOSAGE UNKNOWN
     Dates: start: 20160413, end: 20160415

REACTIONS (4)
  - Loss of consciousness [Recovered/Resolved]
  - Somnolence [Recovered/Resolved]
  - Road traffic accident [Recovered/Resolved]
  - Death [Fatal]

NARRATIVE: CASE EVENT DATE: 20160429
